FAERS Safety Report 5683476-1 (Version None)
Quarter: 2008Q1

REPORT INFORMATION
  Report Type: 
  Country: None (occurrence: None)
  Receive Date: 20080326
  Receipt Date: 20080317
  Transmission Date: 20080703
  Serious: Yes (Hospitalization)
  Sender: FDA-Public Use
  Company Number: E2020-02468-SPO-FR

PATIENT
  Age: 91 Year
  Sex: Female

DRUGS (7)
  1. ARICEPT [Suspect]
     Indication: DEMENTIA ALZHEIMER'S TYPE
     Dosage: 10 MG, 1 IN 1 D, ORAL; 5 MG, 1 IN 1 D, ORAL
     Route: 048
  2. ATHYMIL (MIANSERIN HYDROCHLORIDE) [Suspect]
     Dosage: ORAL
     Route: 048
     Dates: start: 20071214, end: 20071222
  3. EQUANIL [Suspect]
     Dosage: ORAL
     Route: 048
     Dates: end: 20071222
  4. IMOVANE (ZOPICLONE) [Suspect]
     Dosage: ORAL
     Route: 048
     Dates: end: 20071222
  5. CARDENSIEL (BISOPROLOL) [Suspect]
     Dosage: ORAL
     Route: 048
  6. CORDARONE [Suspect]
     Dates: end: 20071222
  7. LORAZEPAM [Concomitant]

REACTIONS (10)
  - BLOOD PRESSURE SYSTOLIC INCREASED [None]
  - DISORIENTATION [None]
  - DRUG INTERACTION [None]
  - FALL [None]
  - HEART RATE DECREASED [None]
  - JOINT DISLOCATION [None]
  - MEMORY IMPAIRMENT [None]
  - RASH ERYTHEMATOUS [None]
  - SYNCOPE [None]
  - UPPER LIMB FRACTURE [None]
